FAERS Safety Report 5224441-8 (Version None)
Quarter: 2007Q1

REPORT INFORMATION
  Report Type: 
  Country: None (occurrence: None)
  Receive Date: 20070130
  Receipt Date: 20070120
  Transmission Date: 20070707
  Serious: Yes (Other)
  Sender: FDA-Public Use
  Company Number: US-PFIZER INC-2006150616

PATIENT
  Age: 85 Year
  Sex: Male
  Weight: 86.2 kg

DRUGS (10)
  1. LIPITOR [Suspect]
     Indication: BLOOD CHOLESTEROL INCREASED
  2. LIPITOR [Suspect]
     Indication: ARTERIOSCLEROSIS
  3. ASPIRIN [Concomitant]
  4. ALL OTHER THERAPEUTIC PRODUCTS [Concomitant]
  5. PLAVIX [Concomitant]
  6. HYDROCHLOROTHIAZIDE [Concomitant]
  7. TOPROL-XL [Concomitant]
  8. ACCUPRIL [Concomitant]
  9. BETOPTIC [Concomitant]
     Route: 047
  10. LUMIGAN [Concomitant]
     Route: 047

REACTIONS (14)
  - ALANINE AMINOTRANSFERASE INCREASED [None]
  - ASPARTATE AMINOTRANSFERASE INCREASED [None]
  - ATRIAL FIBRILLATION [None]
  - BLOOD ALBUMIN DECREASED [None]
  - BLOOD CALCIUM DECREASED [None]
  - BLOOD GLUCOSE ABNORMAL [None]
  - BLOOD UREA INCREASED [None]
  - CAROTID ARTERY STENT INSERTION [None]
  - DELIRIUM [None]
  - MALAISE [None]
  - PANCREATITIS [None]
  - SPINAL LAMINECTOMY [None]
  - VENTRICULAR TACHYCARDIA [None]
  - WEIGHT DECREASED [None]
